FAERS Safety Report 14227530 (Version 2)
Quarter: 2017Q4

REPORT INFORMATION
  Report Type: Spontaneous
  Country: RS (occurrence: RS)
  Receive Date: 20171127
  Receipt Date: 20171130
  Transmission Date: 20180321
  Serious: Yes (Other)
  Sender: FDA-Public Use
  Company Number: RS-SA-2017SA232241

PATIENT
  Age: 40 Year
  Sex: Male

DRUGS (1)
  1. CEREZYME [Suspect]
     Active Substance: IMIGLUCERASE
     Indication: GAUCHER^S DISEASE
     Route: 041

REACTIONS (12)
  - Pain in extremity [Unknown]
  - Parkinson^s disease [Unknown]
  - Musculoskeletal pain [Unknown]
  - Depression [Unknown]
  - Bradykinesia [Unknown]
  - Hypokinesia [Unknown]
  - Muscle rigidity [Unknown]
  - Postural reflex impairment [Unknown]
  - Gait disturbance [Unknown]
  - Arthralgia [Unknown]
  - Tremor [Unknown]
  - Pain in extremity [Unknown]

NARRATIVE: CASE EVENT DATE: 200812
